FAERS Safety Report 23580969 (Version 1)
Quarter: 2024Q1

REPORT INFORMATION
  Report Type: Spontaneous
  Country: CN (occurrence: None)
  Receive Date: 20240229
  Receipt Date: 20240229
  Transmission Date: 20240410
  Serious: Yes (Life-Threatening)
  Sender: FDA-Public Use
  Company Number: CN-ROCHE-3515826

PATIENT
  Age: 6 Year
  Sex: Female
  Weight: 16.2 kg

DRUGS (5)
  1. MABTHERA [Suspect]
     Active Substance: RITUXIMAB
     Indication: Nephrotic syndrome
     Route: 041
     Dates: start: 20240208
  2. DEXAMETHASONE [Concomitant]
     Active Substance: DEXAMETHASONE
     Indication: Antiallergic therapy
     Route: 040
  3. FUROSEMIDE [Concomitant]
     Active Substance: FUROSEMIDE
     Indication: Polyuria
  4. SODIUM CHLORIDE [Concomitant]
     Active Substance: SODIUM CHLORIDE
  5. MANNITOL [Concomitant]
     Active Substance: MANNITOL
     Indication: Intracranial pressure increased
     Route: 041

REACTIONS (6)
  - Confusional state [Recovering/Resolving]
  - Pallor [Unknown]
  - Heart rate increased [Unknown]
  - Hypotonia [Unknown]
  - Nausea [Unknown]
  - Off label use [Unknown]

NARRATIVE: CASE EVENT DATE: 20240208
